FAERS Safety Report 4836501-1 (Version None)
Quarter: 2005Q4

REPORT INFORMATION
  Report Type: 
  Country: None (occurrence: None)
  Receive Date: 20051123
  Receipt Date: 20051117
  Transmission Date: 20060501
  Serious: Yes (Hospitalization)
  Sender: FDA-Public Use
  Company Number: US-GLAXOSMITHKLINE-A0582757A

PATIENT
  Age: 22 Year
  Sex: Male

DRUGS (3)
  1. LITHIUM CARBONATE [Suspect]
     Indication: BIPOLAR DISORDER
     Route: 048
     Dates: start: 20030801, end: 20031001
  2. ZYPREXA [Concomitant]
  3. ANTIDEPRESSANT [Concomitant]

REACTIONS (9)
  - DRUG INEFFECTIVE [None]
  - DYSGEUSIA [None]
  - HOMICIDAL IDEATION [None]
  - INSOMNIA [None]
  - PRURITUS [None]
  - PSYCHOTIC DISORDER [None]
  - SUICIDE ATTEMPT [None]
  - TENSION [None]
  - TREATMENT NONCOMPLIANCE [None]
